FAERS Safety Report 8566206-5 (Version None)
Quarter: 2012Q3

REPORT INFORMATION
  Report Type: 
  Country: None (occurrence: None)
  Receive Date: 20120803
  Receipt Date: 20110830
  Transmission Date: 20120928
  Serious: No
  Sender: FDA-Public Use
  Company Number: US-ABBOTT-11P-163-0851236-00

PATIENT
  Sex: Male
  Weight: 88.53 kg

DRUGS (12)
  1. ASPIRIN [Concomitant]
     Indication: DRUG THERAPY
  2. METAMUCIL-2 [Concomitant]
     Indication: SUPPLEMENTATION THERAPY
  3. LISINOPRIL [Concomitant]
     Indication: HYPERTENSION
  4. MULTI-VITAMIN [Concomitant]
     Indication: SUPPLEMENTATION THERAPY
  5. FISH OIL [Concomitant]
     Indication: BLOOD TRIGLYCERIDES DECREASED
  6. PLAVIX [Concomitant]
     Indication: DRUG THERAPY
  7. NIASPAN [Suspect]
     Indication: BLOOD CHOLESTEROL
     Dates: start: 20110829
  8. NIASPAN [Suspect]
  9. GLUCOSAMINE/CHONDROITIN [Concomitant]
     Indication: ARTHRITIS
  10. NIASPAN [Suspect]
  11. COREG [Concomitant]
     Indication: HYPERTENSION
  12. SIMVASTATIN [Concomitant]
     Indication: BLOOD CHOLESTEROL

REACTIONS (5)
  - HYPOTENSION [None]
  - HIGH DENSITY LIPOPROTEIN DECREASED [None]
  - LOW DENSITY LIPOPROTEIN INCREASED [None]
  - FATIGUE [None]
  - PAIN [None]
